FAERS Safety Report 14014553 (Version 1)
Quarter: 2017Q3

REPORT INFORMATION
  Report Type: Spontaneous
  Country: IN (occurrence: IN)
  Receive Date: 20170927
  Receipt Date: 20170927
  Transmission Date: 20171128
  Serious: Yes (Life-Threatening, Other)
  Sender: FDA-Public Use
  Company Number: IN-ACCORD-058989

PATIENT
  Age: 35 Year
  Sex: Female

DRUGS (2)
  1. FOLINIC ACID [Suspect]
     Active Substance: LEUCOVORIN
     Indication: HUMAN CHORIONIC GONADOTROPIN INCREASED
     Dosage: ON DAY 2, 4, 6, AND 8
     Route: 042
  2. METHOTREXATE. [Suspect]
     Active Substance: METHOTREXATE
     Indication: HUMAN CHORIONIC GONADOTROPIN INCREASED
     Dosage: 1 MG/KG/DAY ON DAYS 1, 3, 5, AND 7
     Route: 042

REACTIONS (1)
  - Drug ineffective [Unknown]
